FAERS Safety Report 7306171-1 (Version None)
Quarter: 2011Q1

REPORT INFORMATION
  Report Type: 
  Country: None (occurrence: None)
  Receive Date: 20110222
  Receipt Date: 20110209
  Transmission Date: 20110831
  Serious: Yes (Death, Life-Threatening, Hospitalization, Other)
  Sender: FDA-Public Use
  Company Number: US-CELGENEUS-163-21880-10123283

PATIENT
  Sex: Male
  Weight: 78.996 kg

DRUGS (42)
  1. REVLIMID [Suspect]
     Route: 048
     Dates: start: 20100819, end: 20101117
  2. DEXAMETHASONE [Suspect]
     Dates: end: 20100909
  3. ASPIRIN [Concomitant]
     Indication: ANTICOAGULANT THERAPY
     Route: 048
     Dates: start: 20100818, end: 20101220
  4. LYRICA [Concomitant]
     Route: 048
     Dates: start: 20060101
  5. MULTI-VITAMINS [Concomitant]
     Indication: SUPPLEMENTATION THERAPY
     Route: 048
     Dates: start: 20050101, end: 20101203
  6. SLO-MAG [Concomitant]
     Indication: SUPPLEMENTATION THERAPY
     Route: 048
     Dates: start: 20060101, end: 20101014
  7. CARFILZOMIB [Suspect]
     Indication: MULTIPLE MYELOMA
     Route: 065
     Dates: start: 20100818, end: 20100820
  8. AMBIEN [Concomitant]
     Route: 048
     Dates: start: 20060101, end: 20101213
  9. PROCRIT [Concomitant]
     Route: 058
     Dates: start: 20100823, end: 20100916
  10. SANDOSTATIN [Concomitant]
     Route: 030
     Dates: start: 20100910
  11. LASIX [Concomitant]
     Route: 048
     Dates: start: 20060101, end: 20100820
  12. LIPITOR [Concomitant]
     Route: 048
     Dates: start: 20100410, end: 20101224
  13. METFORMIN HCL [Concomitant]
     Route: 048
     Dates: start: 20050101, end: 20101224
  14. NYSTATIN [Concomitant]
     Dosage: 5-10ML
     Route: 048
     Dates: start: 20101029, end: 20101203
  15. SLO-MAG [Concomitant]
     Route: 048
     Dates: start: 20101014, end: 20101224
  16. ASPIRIN [Concomitant]
     Indication: ANTIPLATELET THERAPY
  17. GLIPIZIDE [Concomitant]
     Route: 048
     Dates: start: 20070101, end: 20101224
  18. IMODIUM [Concomitant]
     Route: 048
     Dates: start: 20100819
  19. KLOR-CON [Concomitant]
     Indication: SUPPLEMENTATION THERAPY
     Route: 048
     Dates: start: 20100827, end: 20101014
  20. KLOR-CON [Concomitant]
     Route: 048
     Dates: start: 20101014, end: 20101224
  21. VALACYCLOVIR [Concomitant]
     Indication: ANTIVIRAL PROPHYLAXIS
     Route: 048
     Dates: start: 20100818
  22. LEXAPRO [Concomitant]
     Route: 048
     Dates: start: 20100823, end: 20101224
  23. NS [Concomitant]
     Indication: HYPOTENSION
     Dosage: 1-2L
     Route: 065
     Dates: start: 20101101, end: 20101105
  24. METOPROLOL [Concomitant]
     Indication: BLOOD PRESSURE
     Route: 048
     Dates: start: 20050701, end: 20101203
  25. MIRAPEX [Concomitant]
     Indication: PARKINSON'S DISEASE
     Route: 048
     Dates: start: 20050101, end: 20101224
  26. LEXAPRO [Concomitant]
     Indication: ANXIETY
     Route: 048
     Dates: start: 20080101, end: 20100823
  27. LEXAPRO [Concomitant]
     Route: 048
     Dates: start: 20101226
  28. REVLIMID [Suspect]
     Indication: MULTIPLE MYELOMA
     Route: 048
     Dates: start: 20071217, end: 20080117
  29. ATIVAN [Concomitant]
     Indication: ANXIETY DISORDER
     Route: 048
     Dates: start: 20100830, end: 20101224
  30. FERROUS SULFATE TAB [Concomitant]
     Indication: SUPPLEMENTATION THERAPY
     Route: 048
     Dates: start: 20040101
  31. OMEPRAZOLE [Concomitant]
     Route: 048
     Dates: start: 20100820
  32. PROCRIT [Concomitant]
     Route: 058
     Dates: start: 20050101, end: 20100823
  33. REVLIMID [Suspect]
     Route: 048
     Dates: start: 20080201, end: 20080101
  34. CARFILZOMIB [Suspect]
     Route: 065
     Dates: start: 20100826, end: 20100903
  35. OMEPRAZOLE [Concomitant]
     Route: 048
     Dates: start: 20100818
  36. PROCRIT [Concomitant]
     Route: 058
     Dates: start: 20100916, end: 20101216
  37. ZOMETA [Concomitant]
     Route: 051
  38. PHOSPH-NEUTRAL [Concomitant]
     Indication: SUPPLEMENTATION THERAPY
     Route: 048
     Dates: start: 20100813, end: 20100924
  39. DEXAMETHASONE [Suspect]
     Indication: MULTIPLE MYELOMA
     Route: 065
     Dates: start: 20100819
  40. CIPROFLOXACIN [Concomitant]
     Route: 048
     Dates: start: 20100818, end: 20101220
  41. LASIX [Concomitant]
     Route: 048
     Dates: start: 20100921, end: 20101105
  42. QUESTRAN [Concomitant]
     Dosage: 1 PKG
     Route: 048
     Dates: start: 20101021, end: 20101028

REACTIONS (2)
  - SYNCOPE [None]
  - MULTIPLE MYELOMA [None]
